FAERS Safety Report 21341430 (Version 3)
Quarter: 2022Q4

REPORT INFORMATION
  Report Type: Report from Study
  Country: AR (occurrence: AR)
  Receive Date: 20220916
  Receipt Date: 20221129
  Transmission Date: 20230113
  Serious: Yes (Other)
  Sender: FDA-Public Use
  Company Number: AR-NOVARTISPH-NVSC2022AR127654

PATIENT
  Age: 45 Year
  Sex: Female

DRUGS (1)
  1. KISQALI [Suspect]
     Active Substance: RIBOCICLIB
     Indication: Breast cancer metastatic
     Dosage: 200 MG, TID
     Route: 048
     Dates: start: 20220310

REACTIONS (14)
  - Metastasis [Unknown]
  - Metastases to spine [Unknown]
  - Neuralgia [Unknown]
  - White blood cell count decreased [Recovered/Resolved]
  - Malaise [Unknown]
  - Bronchospasm [Unknown]
  - Pulmonary pain [Unknown]
  - Chest pain [Unknown]
  - Fall [Unknown]
  - Accident [Unknown]
  - Musculoskeletal discomfort [Unknown]
  - Cough [Unknown]
  - Headache [Unknown]
  - Inappropriate schedule of product administration [Unknown]

NARRATIVE: CASE EVENT DATE: 20220301
